FAERS Safety Report 14634551 (Version 1)
Quarter: 2018Q1

REPORT INFORMATION
  Report Type: Spontaneous
  Country: FR (occurrence: FR)
  Receive Date: 20180314
  Receipt Date: 20180314
  Transmission Date: 20180509
  Serious: Yes (Other)
  Sender: FDA-Public Use
  Company Number: FR-MERCK KGAA-2043678

PATIENT
  Sex: Female

DRUGS (1)
  1. NOVOTHYROX [Suspect]
     Active Substance: LEVOTHYROXINE SODIUM
     Indication: PRODUCT USED FOR UNKNOWN INDICATION

REACTIONS (28)
  - Anxiety [None]
  - Stress [None]
  - Insomnia [None]
  - Myalgia [None]
  - Migraine [None]
  - Dyspnoea [None]
  - Constipation [None]
  - Nervousness [None]
  - Pain [None]
  - Diarrhoea [None]
  - Amnesia [None]
  - Feeling abnormal [None]
  - Arthralgia [None]
  - Fatigue [None]
  - Feeling hot [None]
  - Nausea [None]
  - Irritability [None]
  - Weight increased [None]
  - Vomiting [None]
  - Tachycardia [None]
  - Disturbance in attention [None]
  - Palpitations [None]
  - Feeling cold [None]
  - Loss of libido [None]
  - Alopecia [None]
  - Mood swings [None]
  - Hair disorder [None]
  - Abdominal pain upper [None]
